FAERS Safety Report 8863304 (Version 2)
Quarter: 2012Q4

REPORT INFORMATION
  Report Type: 
  Country: US (occurrence: US)
  Receive Date: 20121025
  Receipt Date: 20121204
  Transmission Date: 20130627
  Serious: No
  Sender: FDA-Public Use
  Company Number: US-PFIZER INC-2012266744

PATIENT
  Age: 54 Year
  Sex: Male
  Weight: 81.18 kg

DRUGS (14)
  1. CHANTIX [Suspect]
     Indication: SMOKING CESSATION THERAPY
     Dosage: 0.5 mg, 2x/day
     Route: 048
     Dates: start: 201210, end: 201210
  2. CHANTIX [Suspect]
     Dosage: 0.5 mg, 1x/day
     Route: 048
     Dates: start: 20121110, end: 20121118
  3. LISINOPRIL W/HYDROCHLOROTHIAZIDE [Concomitant]
     Indication: HYPERTENSION
     Dosage: 20/25 mg, 4x/day
  4. CLONIDINE HYDROCHLORIDE [Concomitant]
     Indication: HYPERTENSION
     Dosage: 0.1 mg, 2x/day
  5. IRON [Concomitant]
     Indication: ANEMIA
     Dosage: 325 mg, 1x/day
  6. SOMA [Concomitant]
     Dosage: 350 mg, 2x/day
  7. TRAMADOL [Concomitant]
     Dosage: 100 mg, 4x/day
  8. PROPRANOLOL [Concomitant]
     Dosage: 80 mg, 4x/day
  9. ABILIFY [Concomitant]
     Dosage: 20 mg, UNK
  10. COMBIVENT [Concomitant]
     Dosage: 2 puffs, 4x/day
  11. FLONASE [Concomitant]
     Dosage: UNK, 2x/day
  12. GUAIFENESIN [Concomitant]
     Indication: COUGH
     Dosage: 2 teaspoons, as needed
  13. LYRICA [Concomitant]
     Dosage: 200 mg, 3x/day
  14. ZOFRAN [Concomitant]
     Dosage: 4 mg, 3x/day

REACTIONS (1)
  - Emotional disorder [Not Recovered/Not Resolved]
